FAERS Safety Report 14948792 (Version 2)
Quarter: 2021Q3

REPORT INFORMATION
  Report Type: Spontaneous
  Country: US (occurrence: US)
  Receive Date: 20180529
  Receipt Date: 20210930
  Transmission Date: 20211014
  Serious: Yes (Hospitalization)
  Sender: FDA-Public Use
  Company Number: US-BIOGEN-2018BI00586329

PATIENT
  Sex: Female

DRUGS (3)
  1. TYSABRI [Suspect]
     Active Substance: NATALIZUMAB
     Indication: MULTIPLE SCLEROSIS
     Route: 050
     Dates: start: 20160624
  2. TYSABRI [Suspect]
     Active Substance: NATALIZUMAB
     Route: 065
     Dates: start: 20160624
  3. DALFAMPRIDINE. [Suspect]
     Active Substance: DALFAMPRIDINE
     Indication: PRODUCT USED FOR UNKNOWN INDICATION
     Route: 065

REACTIONS (13)
  - Multiple sclerosis relapse [Unknown]
  - Back pain [Unknown]
  - Lower limb fracture [Unknown]
  - Onychomycosis [Unknown]
  - Arthralgia [Unknown]
  - Loss of control of legs [Unknown]
  - Joint injury [Unknown]
  - Fall [Recovered/Resolved]
  - Calcinosis [Unknown]
  - Meniscus injury [Unknown]
  - Arthritis [Unknown]
  - Multiple sclerosis relapse [Recovered/Resolved]
  - Peroneal nerve palsy [Not Recovered/Not Resolved]

NARRATIVE: CASE EVENT DATE: 2017
